FAERS Safety Report 8076967-X (Version None)
Quarter: 2012Q1

REPORT INFORMATION
  Report Type: 
  Country: None (occurrence: None)
  Receive Date: 20120127
  Receipt Date: 20120125
  Transmission Date: 20120608
  Serious: Yes (Hospitalization)
  Sender: FDA-Public Use
  Company Number: US-GLAXOSMITHKLINE-A0905571A

PATIENT
  Age: 68 Year
  Sex: Female
  Weight: 98.2 kg

DRUGS (5)
  1. LISINOPRIL [Concomitant]
  2. ALLOPURINOL [Concomitant]
  3. AVANDIA [Suspect]
     Indication: DIABETES MELLITUS
     Dosage: 4MG PER DAY
     Route: 048
     Dates: start: 20060101, end: 20080101
  4. LYRICA [Concomitant]
  5. GLIPIZIDE [Concomitant]

REACTIONS (2)
  - HYPERTENSION [None]
  - CEREBROVASCULAR ACCIDENT [None]
